FAERS Safety Report 13623646 (Version 1)
Quarter: 2017Q2

REPORT INFORMATION
  Report Type: Spontaneous
  Country: US (occurrence: US)
  Receive Date: 20170608
  Receipt Date: 20170608
  Transmission Date: 20170830
  Serious: No
  Sender: FDA-Public Use
  Company Number: US-TEVA-758168ACC

PATIENT
  Age: 63 Year
  Sex: Female
  Weight: 70.29 kg

DRUGS (6)
  1. MUCUS D [Suspect]
     Active Substance: GUAIFENESIN\PSEUDOEPHEDRINE HYDROCHLORIDE
     Indication: NASAL CONGESTION
     Dosage: 2 DOSAGE FORMS DAILY;
     Route: 048
     Dates: start: 20170321
  2. OMEGA 3 [Concomitant]
     Active Substance: OMEGA-3 FATTY ACIDS
  3. VITAMIN D [Concomitant]
     Active Substance: CHOLECALCIFEROL
  4. MUCUS D [Suspect]
     Active Substance: GUAIFENESIN\PSEUDOEPHEDRINE HYDROCHLORIDE
     Indication: COUGH
     Dosage: 2 TABLETS, SINGLE
     Route: 048
     Dates: start: 201703, end: 201703
  5. MUCUS D [Suspect]
     Active Substance: GUAIFENESIN\PSEUDOEPHEDRINE HYDROCHLORIDE
     Indication: VIRAL UPPER RESPIRATORY TRACT INFECTION
     Dosage: 1 TO 2 TABLETS
     Route: 048
     Dates: start: 201611, end: 201612
  6. VITAMIN B NOS [Concomitant]
     Active Substance: VITAMIN B

REACTIONS (3)
  - Decreased appetite [Unknown]
  - Incorrect dose administered [Unknown]
  - Insomnia [Recovered/Resolved]

NARRATIVE: CASE EVENT DATE: 201611
